FAERS Safety Report 8494478 (Version 16)
Quarter: 2015Q4

REPORT INFORMATION
  Report Type: Report from Study
  Country: CA (occurrence: CA)
  Receive Date: 20120404
  Receipt Date: 20151229
  Transmission Date: 20160305
  Serious: Yes (Hospitalization, Other)
  Sender: FDA-Public Use
  Company Number: CA-ROCHE-1052601

PATIENT
  Age: 68 Year
  Sex: Female
  Weight: 80 kg

DRUGS (18)
  1. ADALAT [Concomitant]
     Active Substance: NIFEDIPINE
  2. DIPHENHYDRAMINE HCL [Concomitant]
     Active Substance: DIPHENHYDRAMINE HYDROCHLORIDE
     Route: 048
     Dates: start: 20130527
  3. NAPROXEN. [Suspect]
     Active Substance: NAPROXEN
     Indication: RHEUMATOID ARTHRITIS
     Route: 048
     Dates: end: 201308
  4. PANTOLOC [Concomitant]
     Active Substance: PANTOPRAZOLE SODIUM
  5. WELLBUTRIN [Concomitant]
     Active Substance: BUPROPION HYDROCHLORIDE
  6. SYNTHROID [Concomitant]
     Active Substance: LEVOTHYROXINE SODIUM
  7. DIPHENHYDRAMINE HCL [Concomitant]
     Active Substance: DIPHENHYDRAMINE HYDROCHLORIDE
     Route: 042
     Dates: start: 20110901
  8. DUROLANE [Concomitant]
     Active Substance: HYALURONIC ACID
  9. METHYLPREDNISOLONE. [Concomitant]
     Active Substance: METHYLPREDNISOLONE
     Indication: PREMEDICATION
     Route: 042
     Dates: start: 20110901
  10. ZOPICLONE [Concomitant]
     Active Substance: ZOPICLONE
  11. RITUXAN [Suspect]
     Active Substance: RITUXIMAB
     Indication: RHEUMATOID ARTHRITIS
     Dosage: LATEST INFUSION: 16/MAY/2014
     Route: 042
     Dates: start: 20110816
  12. ZOSTAVAX [Concomitant]
     Active Substance: VARICELLA-ZOSTER VIRUS STRAIN OKA/MERCK LIVE ANTIGEN
     Route: 065
     Dates: start: 20131104
  13. RITUXAN [Suspect]
     Active Substance: RITUXIMAB
     Dosage: LATEST INFUSION: 29/MAY/2015
     Route: 042
     Dates: start: 20141016
  14. VITAMIN B12 [Concomitant]
     Active Substance: CYANOCOBALAMIN
  15. LORAZEPAM. [Concomitant]
     Active Substance: LORAZEPAM
  16. ACETAMINOPHEN. [Concomitant]
     Active Substance: ACETAMINOPHEN
     Indication: PREMEDICATION
     Route: 048
     Dates: start: 20130527
  17. APO-HYDRO [Concomitant]
     Active Substance: HYDROCHLOROTHIAZIDE
  18. DIPHENHYDRAMINE HCL [Concomitant]
     Active Substance: DIPHENHYDRAMINE HYDROCHLORIDE
     Indication: PREMEDICATION
     Route: 042
     Dates: start: 20110901

REACTIONS (24)
  - Foot fracture [Unknown]
  - Blood glucose decreased [Unknown]
  - Pain [Not Recovered/Not Resolved]
  - Pneumonia [Unknown]
  - Wound [Not Recovered/Not Resolved]
  - Skin abrasion [Recovered/Resolved]
  - Blood potassium decreased [Unknown]
  - Fatigue [Not Recovered/Not Resolved]
  - Asthma [Recovered/Resolved]
  - Gait disturbance [Not Recovered/Not Resolved]
  - Fall [Unknown]
  - Balance disorder [Not Recovered/Not Resolved]
  - Pain in extremity [Not Recovered/Not Resolved]
  - Contusion [Recovered/Resolved]
  - Cataract [Unknown]
  - Laceration [Unknown]
  - Drug administration error [Unknown]
  - Increased tendency to bruise [Unknown]
  - Foot deformity [Unknown]
  - Eye disorder [Unknown]
  - Infusion related reaction [Unknown]
  - Arthralgia [Not Recovered/Not Resolved]
  - Blood pressure increased [Unknown]
  - Dizziness postural [Not Recovered/Not Resolved]

NARRATIVE: CASE EVENT DATE: 20120309
